FAERS Safety Report 14035664 (Version 1)
Quarter: 2017Q4

REPORT INFORMATION
  Report Type: Spontaneous
  Country: US (occurrence: US)
  Receive Date: 20171003
  Receipt Date: 20171003
  Transmission Date: 20180321
  Serious: Yes (Other)
  Sender: FDA-Public Use
  Company Number: US-ALLERGAN-1756092US

PATIENT
  Age: 69 Year
  Sex: Female

DRUGS (1)
  1. RESTASIS [Suspect]
     Active Substance: CYCLOSPORINE
     Indication: PRODUCT USED FOR UNKNOWN INDICATION
     Dosage: UNK
     Route: 047
     Dates: end: 2012

REACTIONS (6)
  - Rosacea [Unknown]
  - Dry eye [Unknown]
  - Eye pain [Unknown]
  - Breast cancer [Unknown]
  - Corneal abrasion [Unknown]
  - Drug dose omission [Unknown]
